FAERS Safety Report 8452449-8 (Version None)
Quarter: 2012Q2

REPORT INFORMATION
  Report Type: 
  Country: None (occurrence: None)
  Receive Date: 20120620
  Receipt Date: 20120615
  Transmission Date: 20120825
  Serious: No
  Sender: FDA-Public Use
  Company Number: US-PFIZER INC-2012092066

PATIENT
  Sex: Female
  Weight: 98 kg

DRUGS (14)
  1. ALBUTEROL (VENTOLIN HFA) [Concomitant]
     Indication: ASTHMA
  2. LEVOTHYROXINE [Concomitant]
     Indication: HYPOTHYROIDISM
     Dosage: 100 UG, UNK
  3. ADVAIR DISKUS 100/50 [Concomitant]
     Indication: CHRONIC OBSTRUCTIVE PULMONARY DISEASE
     Dosage: UNK
     Dates: start: 20030101
  4. ALDACTONE [Suspect]
     Indication: POLYCYSTIC OVARIES
  5. SPIRONOLACTONE [Suspect]
     Indication: VIRILISM
     Dosage: 25 MG, 1X/DAY
     Route: 048
  6. LASIX [Concomitant]
     Indication: HYPERTENSION
     Dosage: 40 MG, 1X/DAY
     Dates: start: 20030101
  7. ADVAIR DISKUS 100/50 [Concomitant]
     Indication: ASTHMA
  8. ALDACTONE [Suspect]
     Indication: VIRILISM
     Dosage: 25 MG, 1X/DAY
     Route: 048
  9. ALDACTONE [Suspect]
     Indication: BLOOD TESTOSTERONE INCREASED
  10. SPIRONOLACTONE [Suspect]
     Indication: BLOOD TESTOSTERONE INCREASED
  11. SPIRONOLACTONE [Suspect]
     Indication: POLYCYSTIC OVARIES
     Dosage: 50 MG, 2X/DAY
     Route: 048
     Dates: start: 20030101
  12. LISINOPRIL [Concomitant]
     Indication: HYPERTENSION
     Dosage: 10 MG, 1X/DAY
     Dates: start: 20030101
  13. PRAVASTATIN [Concomitant]
     Indication: BLOOD CHOLESTEROL INCREASED
     Dosage: 20 MG, 1X/DAY
     Dates: start: 20030101
  14. ALBUTEROL (VENTOLIN HFA) [Concomitant]
     Indication: CHRONIC OBSTRUCTIVE PULMONARY DISEASE
     Dosage: UNK
     Dates: start: 20030101

REACTIONS (1)
  - OSTEOPOROSIS [None]
